FAERS Safety Report 25207542 (Version 1)
Quarter: 2025Q2

REPORT INFORMATION
  Report Type: Report from Study
  Country: AR (occurrence: AR)
  Receive Date: 20250417
  Receipt Date: 20250417
  Transmission Date: 20250717
  Serious: Yes (Death, Other)
  Sender: TAKEDA
  Company Number: AR-TAKEDA-2025TUS037621

PATIENT
  Age: 79 Year
  Sex: Male

DRUGS (1)
  1. IXAZOMIB [Suspect]
     Active Substance: IXAZOMIB
     Indication: Plasma cell myeloma
     Dates: start: 20200310, end: 20250214

REACTIONS (3)
  - Death [Fatal]
  - Diverticulitis [Unknown]
  - Fall [Unknown]

NARRATIVE: CASE EVENT DATE: 20250214
